FAERS Safety Report 5332556-9 (Version None)
Quarter: 2007Q2

REPORT INFORMATION
  Report Type: 
  Country: None (occurrence: None)
  Receive Date: 20070523
  Receipt Date: 20070509
  Transmission Date: 20071010
  Serious: Yes (Other)
  Sender: FDA-Public Use
  Company Number: US-SHR-US-2007-011617

PATIENT
  Age: 79 Year
  Sex: Male

DRUGS (49)
  1. MAGNEVIST [Suspect]
     Indication: NUCLEAR MAGNETIC RESONANCE IMAGING ABDOMINAL
     Dosage: 20 ML, 1 DOSE
     Route: 042
     Dates: start: 19981105, end: 19981105
  2. MAGNEVIST [Suspect]
     Dosage: 20 ML, 1 DOSE
     Route: 042
     Dates: start: 20061202, end: 20061202
  3. MAGNEVIST [Suspect]
     Dosage: 40 ML, 1 DOSE
     Route: 042
     Dates: start: 20061205, end: 20061205
  4. ANTI-COAGULATION THERAPY [Concomitant]
  5. DIGOXIN [Concomitant]
  6. TENORMIN [Concomitant]
  7. ATENOLOL [Concomitant]
  8. HYDROCHLOROTHIAZIDE [Concomitant]
  9. ROCALTROL [Concomitant]
  10. CARDURA                                 /IRE/ [Concomitant]
  11. VERAPAMIL [Concomitant]
  12. TEMAZEPAM [Concomitant]
  13. CLONAZEPAM [Concomitant]
  14. ALLOPURINOL [Concomitant]
  15. IRON [Concomitant]
  16. RESTORIL [Concomitant]
  17. COLACE [Concomitant]
  18. TYLENOL [Concomitant]
  19. METOCLOPRAMIDE [Concomitant]
  20. ATORVASTATIN CALCIUM [Concomitant]
  21. OXAZEPAM [Concomitant]
  22. NEPHROCAPS [Concomitant]
  23. DROPERIDOL [Concomitant]
  24. ALBUTEROL [Concomitant]
  25. ATROVENT [Concomitant]
  26. FLOVENT [Concomitant]
  27. PHOSLO [Concomitant]
  28. ISORDIL [Concomitant]
  29. LOPRESSOR [Concomitant]
  30. AVAPRO [Concomitant]
  31. NORVASC [Concomitant]
  32. CELEXA [Concomitant]
  33. LIPITOR [Concomitant]
  34. IMDUR [Concomitant]
  35. TOPROL-XL [Concomitant]
  36. EPOGEN [Concomitant]
  37. DILTIAZEM [Concomitant]
  38. PROTONIX [Concomitant]
  39. NEURONTIN [Concomitant]
  40. DIGOXIN [Concomitant]
  41. COUMADIN [Concomitant]
  42. VIAGRA [Concomitant]
  43. LORAGA [Concomitant]
  44. AMIODARONE HCL [Concomitant]
  45. ZOFRAN [Concomitant]
  46. SARNA [Concomitant]
  47. SENNA [Concomitant]
  48. ARANESP [Concomitant]
  49. FERRLECIT                               /USA/ [Concomitant]
     Dosage: 125 MG, 1X/WEEK

REACTIONS (2)
  - NEPHROGENIC FIBROSING DERMOPATHY [None]
  - SERUM FERRITIN INCREASED [None]
